FAERS Safety Report 6070298-5 (Version None)
Quarter: 2009Q1

REPORT INFORMATION
  Report Type: 
  Country: None (occurrence: None)
  Receive Date: 20090209
  Receipt Date: 20081126
  Transmission Date: 20090719
  Serious: Yes (Hospitalization)
  Sender: FDA-Public Use
  Company Number: GB-PFIZER INC-2007028040

PATIENT

DRUGS (10)
  1. SUNITINIB MALATE [Suspect]
     Indication: COLORECTAL CANCER METASTATIC
     Dosage: 37.5 MG, 1X/DAY
     Route: 048
     Dates: start: 20070126, end: 20070213
  2. SUNITINIB MALATE [Suspect]
     Dosage: DAILY
     Route: 048
     Dates: start: 20070307, end: 20070322
  3. IRINOTECAN HCL [Suspect]
     Indication: COLORECTAL CANCER METASTATIC
     Dosage: 378 MG, TWO WEEKLY
     Route: 042
     Dates: start: 20070124, end: 20070207
  4. FLUOROURACIL [Suspect]
     Indication: COLORECTAL CANCER METASTATIC
     Dosage: 5880 MG, TWO WEEKLY
     Route: 042
     Dates: start: 20070124, end: 20070323
  5. FOLINIC ACID [Suspect]
     Dosage: 420 MG, TWO WEEKLY
     Route: 042
     Dates: start: 20070124, end: 20070321
  6. GLICLAZIDE [Concomitant]
     Route: 048
     Dates: start: 20000101
  7. PERINDOPRIL ERBUMINE [Concomitant]
     Route: 048
     Dates: start: 20000101
  8. TAMOXIFEN CITRATE [Concomitant]
     Dosage: UNK
     Route: 048
     Dates: start: 20010101
  9. LANSOPRAZOLE [Concomitant]
     Route: 048
     Dates: start: 20070101
  10. FLUCLOXACILLIN [Concomitant]
     Route: 048
     Dates: start: 20070325

REACTIONS (1)
  - CATHETER RELATED INFECTION [None]
